FAERS Safety Report 4720983-X (Version None)
Quarter: 2005Q3

REPORT INFORMATION
  Report Type: 
  Country: None (occurrence: None)
  Receive Date: 20050719
  Receipt Date: 20041011
  Transmission Date: 20060218
  Serious: Yes (Hospitalization, Disabling)
  Sender: FDA-Public Use
  Company Number: 2004238593US

PATIENT
  Age: 60 Year
  Sex: Female
  Weight: 74.8 kg

DRUGS (14)
  1. CELEBREX [Suspect]
     Indication: ARTHRITIS
     Dosage: SEE IMAGE
     Dates: start: 20000101
  2. CELEBREX [Suspect]
     Indication: ARTHRITIS
     Dosage: SEE IMAGE
     Dates: start: 20030101
  3. WARFARIN SODIUM [Concomitant]
  4. PREVACID [Concomitant]
  5. HYDROCHLOROTHIAZIDE [Concomitant]
  6. AVAPRO [Concomitant]
  7. FLUOXETINE [Concomitant]
  8. COMBIVENT [Concomitant]
  9. GLUCOSAMINE [Concomitant]
  10. MULTIVITAMINS (ERGOCALCIFEROL, RETINOL, PANTHENOL) [Concomitant]
  11. CALCIUM GLUCONATE [Concomitant]
  12. MAGNESIUM [Concomitant]
  13. KLONOPIN [Concomitant]
  14. TYLENOL [Concomitant]

REACTIONS (2)
  - CEREBROVASCULAR ACCIDENT [None]
  - DRUG INEFFECTIVE [None]
